FAERS Safety Report 5826160-3 (Version None)
Quarter: 2008Q3

REPORT INFORMATION
  Report Type: 
  Country: None (occurrence: None)
  Receive Date: 20080729
  Receipt Date: 20080717
  Transmission Date: 20090109
  Serious: Yes (Hospitalization)
  Sender: FDA-Public Use
  Company Number: US-TYCO HEALTHCARE/MALLINCKRODT-T200801198

PATIENT

DRUGS (5)
  1. METHADOSE [Suspect]
     Dosage: 10 MG, 3 TO 4 TABS EVERY 3 TO 4 HRS
     Route: 048
     Dates: start: 20070501, end: 20080315
  2. FENTANYL CITRATE [Suspect]
     Indication: PAIN IN JAW
     Dosage: 1200 UG, UNK
     Route: 002
     Dates: start: 20040904
  3. ALPRAZOLAM [Concomitant]
  4. MEPERGAN [Concomitant]
     Dates: start: 20080301
  5. SOMA [Concomitant]

REACTIONS (6)
  - DEHYDRATION [None]
  - DISCOMFORT [None]
  - INSOMNIA [None]
  - LOSS OF CONSCIOUSNESS [None]
  - VIRAL INFECTION [None]
  - WITHDRAWAL SYNDROME [None]
